FAERS Safety Report 6662346-6 (Version None)
Quarter: 2010Q1

REPORT INFORMATION
  Report Type: 
  Country: None (occurrence: None)
  Receive Date: 20100331
  Receipt Date: 20090831
  Transmission Date: 20100710
  Serious: No
  Sender: FDA-Public Use
  Company Number: US-ABBOTT-09P-163-0594802-00

PATIENT
  Sex: Female
  Weight: 69.462 kg

DRUGS (3)
  1. LUPRON DEPOT [Suspect]
     Indication: UTERINE LEIOMYOMA
     Route: 050
     Dates: start: 20090701
  2. IRON PILLS [Concomitant]
     Indication: ANAEMIA
     Dosage: UNKNOWN
     Route: 048
  3. IBUPROFEN [Concomitant]
     Indication: PAIN
     Dosage: UNKNOWN
     Route: 048

REACTIONS (6)
  - ABDOMINAL PAIN [None]
  - HOT FLUSH [None]
  - MENORRHAGIA [None]
  - MIGRAINE [None]
  - MOOD SWINGS [None]
  - SKIN DISCOLOURATION [None]
